FAERS Safety Report 6431884-3 (Version None)
Quarter: 2009Q4

REPORT INFORMATION
  Report Type: 
  Country: None (occurrence: None)
  Receive Date: 20091109
  Receipt Date: 20091102
  Transmission Date: 20100525
  Serious: Yes (Hospitalization)
  Sender: FDA-Public Use
  Company Number: US-BIOGENIDEC-2009BI011023

PATIENT
  Age: 52 Year
  Sex: Female
  Weight: 65 kg

DRUGS (1)
  1. TYSABRI [Suspect]
     Indication: MULTIPLE SCLEROSIS
     Route: 042
     Dates: start: 20080701

REACTIONS (8)
  - CHOLELITHIASIS [None]
  - DEAFNESS UNILATERAL [None]
  - FIBULA FRACTURE [None]
  - MULTIPLE SCLEROSIS [None]
  - PANCREATITIS ACUTE [None]
  - RADIATION INJURY [None]
  - TRIGEMINAL NEURALGIA [None]
  - VISUAL IMPAIRMENT [None]
